FAERS Safety Report 9799884 (Version 1)
Quarter: 2014Q1

REPORT INFORMATION
  Report Type: Spontaneous
  Country: FR (occurrence: FR)
  Receive Date: 20140106
  Receipt Date: 20140106
  Transmission Date: 20141002
  Serious: Yes (Hospitalization)
  Sender: FDA-Public Use
  Company Number: FR-GLAXOSMITHKLINE-B0955734A

PATIENT
  Age: 78 Year
  Sex: Female

DRUGS (9)
  1. DEROXAT [Suspect]
     Indication: PRODUCT USED FOR UNKNOWN INDICATION
     Dosage: 20MG PER DAY
     Route: 048
     Dates: start: 201004, end: 20131201
  2. COAPROVEL [Suspect]
     Indication: PRODUCT USED FOR UNKNOWN INDICATION
     Dosage: 1TAB PER DAY
     Route: 048
     Dates: end: 20131201
  3. STRESAM [Suspect]
     Indication: PRODUCT USED FOR UNKNOWN INDICATION
     Dosage: 150MG PER DAY
     Route: 048
     Dates: start: 201104, end: 20131201
  4. CARDIOCALM [Suspect]
     Indication: PRODUCT USED FOR UNKNOWN INDICATION
     Dosage: 1TAB PER DAY
     Route: 048
     Dates: end: 20131201
  5. CHONDROSULF [Suspect]
     Indication: PRODUCT USED FOR UNKNOWN INDICATION
     Dosage: 1200MG PER DAY
     Route: 048
     Dates: start: 201004, end: 20131201
  6. PENTASA [Concomitant]
     Dosage: 1TAB PER DAY
     Route: 048
  7. TAHOR [Concomitant]
     Route: 065
  8. TARDYFERON [Concomitant]
     Route: 065
  9. SPECIAFOLDINE [Concomitant]
     Route: 065

REACTIONS (4)
  - Colitis microscopic [Not Recovered/Not Resolved]
  - Diarrhoea [Not Recovered/Not Resolved]
  - Hypokalaemia [Unknown]
  - Clostridium test positive [Not Recovered/Not Resolved]
